FAERS Safety Report 4938675-0 (Version None)
Quarter: 2006Q1

REPORT INFORMATION
  Report Type: 
  Country: None (occurrence: None)
  Receive Date: 20060309
  Receipt Date: 20060227
  Transmission Date: 20060701
  Serious: Yes (Hospitalization)
  Sender: FDA-Public Use
  Company Number: PHBS2006JP03306

PATIENT
  Age: 48 Year
  Sex: Female

DRUGS (2)
  1. LOCHOL [Suspect]
     Indication: HYPERCHOLESTEROLAEMIA
     Dosage: 30 MG/DAY
     Route: 048
     Dates: start: 20060222, end: 20060222
  2. ACTOS [Suspect]
     Route: 048
     Dates: start: 20060222, end: 20060222

REACTIONS (5)
  - ALANINE AMINOTRANSFERASE INCREASED [None]
  - ASPARTATE AMINOTRANSFERASE INCREASED [None]
  - CHEST PAIN [None]
  - LIVER DISORDER [None]
  - SHOCK [None]
